FAERS Safety Report 10908838 (Version 1)
Quarter: 2015Q1

REPORT INFORMATION
  Report Type: Spontaneous
  Country: AU (occurrence: AU)
  Receive Date: 20150312
  Receipt Date: 20150312
  Transmission Date: 20150721
  Serious: Yes (Other)
  Sender: FDA-Public Use
  Company Number: AU-PFIZER INC-0004530201PHAMED

PATIENT
  Age: 43 Year
  Sex: Male
  Weight: 90 kg

DRUGS (7)
  1. ASPIRIN. [Suspect]
     Active Substance: ASPIRIN
     Dosage: 300 MG, DAILY
     Dates: start: 19890425
  2. ATENOLOL. [Suspect]
     Active Substance: ATENOLOL
     Indication: METABOLIC DISORDER
     Dosage: 50 MG, DAILY
     Route: 048
     Dates: start: 19890425, end: 19890426
  3. METOCLOPRAMIDE HCL [Suspect]
     Active Substance: METOCLOPRAMIDE HYDROCHLORIDE
     Indication: NAUSEA
  4. METOCLOPRAMIDE HCL [Suspect]
     Active Substance: METOCLOPRAMIDE HYDROCHLORIDE
     Indication: VOMITING
     Dosage: 60 MG, DAILY
     Dates: start: 19890425
  5. HYDROCORTISONE SODIUM SUCCINATE [Suspect]
     Active Substance: HYDROCORTISONE SODIUM SUCCINATE
     Dosage: UNKNOWN MG, DAILY
  6. HYDROCORTISONE SODIUM SUCCINATE [Suspect]
     Active Substance: HYDROCORTISONE SODIUM SUCCINATE
     Dosage: 100.0 MG, UNK
     Route: 042
     Dates: start: 19890425, end: 19890425
  7. MORPHINE SULFATE. [Suspect]
     Active Substance: MORPHINE SULFATE
     Dosage: 25 MG, DAILY
     Route: 042
     Dates: start: 19890425, end: 19890426

REACTIONS (5)
  - Pneumonia [Recovered/Resolved]
  - Dyspnoea [Recovered/Resolved]
  - Hyperhidrosis [Recovered/Resolved]
  - Tachycardia [Recovered/Resolved]
  - Arrhythmia [Unknown]
